FAERS Safety Report 8852113 (Version 1)
Quarter: 2012Q4

REPORT INFORMATION
  Report Type: 
  Country: FR (occurrence: FR)
  Receive Date: 20121022
  Receipt Date: 20121022
  Transmission Date: 20130627
  Serious: Yes (Other)
  Sender: FDA-Public Use
  Company Number: FR-PFIZER INC-2012260016

PATIENT
  Sex: Male

DRUGS (1)
  1. MINOXIDIL [Suspect]

REACTIONS (1)
  - Renal failure acute [Unknown]
